FAERS Safety Report 9173789 (Version 1)
Quarter: 2013Q1

REPORT INFORMATION
  Report Type: Spontaneous
  Country: US (occurrence: US)
  Receive Date: 20130320
  Receipt Date: 20130320
  Transmission Date: 20140127
  Serious: Yes (Other)
  Sender: FDA-Public Use
  Company Number: US-RANBAXY-2013US-66287

PATIENT
  Age: 47 Year
  Sex: Female

DRUGS (2)
  1. CLINDAMYCIN [Suspect]
     Indication: TOOTH INFECTION
     Dosage: UNK
     Route: 048
  2. CLINDAMYCIN [Suspect]
     Indication: TOOTH INFECTION
     Dosage: UNK
     Route: 042

REACTIONS (1)
  - Acute febrile neutrophilic dermatosis [Recovered/Resolved]
